FAERS Safety Report 25473375 (Version 2)
Quarter: 2025Q3

REPORT INFORMATION
  Report Type: Spontaneous
  Country: US (occurrence: US)
  Receive Date: 20250624
  Receipt Date: 20250901
  Transmission Date: 20251020
  Serious: No
  Sender: LUPIN
  Company Number: US-LUPIN PHARMACEUTICALS INC.-2025-05320

PATIENT
  Age: 58 Year
  Weight: 63 kg

DRUGS (4)
  1. ALBUTEROL SULFATE [Suspect]
     Active Substance: ALBUTEROL SULFATE
     Indication: Chronic obstructive pulmonary disease
  2. ALBUTEROL SULFATE [Suspect]
     Active Substance: ALBUTEROL SULFATE
  3. SPIRIVA [Concomitant]
     Active Substance: TIOTROPIUM BROMIDE MONOHYDRATE
     Indication: Product used for unknown indication
     Route: 065
  4. SYMBICORT [Concomitant]
     Active Substance: BUDESONIDE\FORMOTEROL FUMARATE DIHYDRATE
     Indication: Product used for unknown indication
     Route: 065

REACTIONS (6)
  - Dyspnoea [Unknown]
  - Drug dose omission by device [Unknown]
  - Prescription drug used without a prescription [Unknown]
  - Wrong technique in product usage process [Unknown]
  - Device deposit issue [Unknown]
  - Device delivery system issue [Unknown]
